FAERS Safety Report 7639355-3 (Version None)
Quarter: 2011Q3

REPORT INFORMATION
  Report Type: 
  Country: None (occurrence: None)
  Receive Date: 20110727
  Receipt Date: 20110719
  Transmission Date: 20111222
  Serious: Yes (Hospitalization)
  Sender: FDA-Public Use
  Company Number: PHHY2011IT65346

PATIENT
  Age: 62 Year
  Sex: Female

DRUGS (3)
  1. DISULFIRAM [Interacting]
     Indication: ALCOHOLISM
     Dosage: 400 MG PER DAY
     Dates: start: 20090601
  2. GAMMA-HYDROXYBUTYRIC ACID [Interacting]
     Indication: ALCOHOLISM
     Dosage: 3500 MG PER DAY (46 MG/KG/DAY )
  3. VALPROATE SODIUM [Suspect]
     Indication: MOOD ALTERED
     Dosage: 500 MG, BID
     Dates: start: 20090601

REACTIONS (10)
  - MEMORY IMPAIRMENT [None]
  - AFFECTIVE DISORDER [None]
  - GRAND MAL CONVULSION [None]
  - ATTENTION DEFICIT/HYPERACTIVITY DISORDER [None]
  - CONFUSIONAL STATE [None]
  - HYPOMANIA [None]
  - CONFABULATION [None]
  - HEPATIC ENZYME INCREASED [None]
  - PSYCHOTIC BEHAVIOUR [None]
  - DRUG INTERACTION [None]
